FAERS Safety Report 24138289 (Version 2)
Quarter: 2024Q4

REPORT INFORMATION
  Report Type: Spontaneous
  Country: US (occurrence: US)
  Receive Date: 20240725
  Receipt Date: 20241029
  Transmission Date: 20250114
  Serious: No
  Sender: TEIKOKU
  Company Number: US-TPU-TPU-2024-00396

PATIENT
  Sex: Female

DRUGS (1)
  1. LIDOCAINE [Suspect]
     Active Substance: LIDOCAINE
     Indication: Pain
     Dates: start: 20240705

REACTIONS (1)
  - Drug ineffective [Unknown]
